FAERS Safety Report 9666000 (Version 1)
Quarter: 2013Q4

REPORT INFORMATION
  Report Type: Spontaneous
  Country: FR (occurrence: FR)
  Receive Date: 20131104
  Receipt Date: 20131104
  Transmission Date: 20140711
  Serious: Yes (Disabling)
  Sender: FDA-Public Use
  Company Number: FR-UCBSA-102016

PATIENT
  Age: 30 Year
  Sex: Female

DRUGS (1)
  1. XYZALL [Suspect]
     Indication: URTICARIA
     Dosage: 1 UNIT DAILY
     Route: 048
     Dates: start: 20130706, end: 201308

REACTIONS (3)
  - Somnolence [Recovered/Resolved]
  - Asthenia [Recovered/Resolved]
  - Abdominal distension [Recovered/Resolved]
